FAERS Safety Report 8054488-8 (Version None)
Quarter: 2012Q1

REPORT INFORMATION
  Report Type: 
  Country: None (occurrence: None)
  Receive Date: 20120118
  Receipt Date: 20120111
  Transmission Date: 20120608
  Serious: Yes (Hospitalization, Disabling, Other)
  Sender: FDA-Public Use
  Company Number: US-MERCK-95111655

PATIENT
  Age: 54 Year
  Sex: Female
  Weight: 73 kg

DRUGS (7)
  1. FOSAMAX [Suspect]
     Indication: OSTEOPOROSIS
     Route: 048
     Dates: start: 19951113
  2. FOSAMAX [Suspect]
     Route: 048
     Dates: end: 20080301
  3. SYNTHROID [Concomitant]
     Indication: HYPOTHYROIDISM
     Route: 065
  4. TENORMIN [Concomitant]
     Indication: HYPERTENSION
     Route: 065
     Dates: start: 19800101
  5. FOSAMAX PLUS D [Suspect]
     Indication: OSTEOPOROSIS
     Route: 048
  6. SYNTHROID [Concomitant]
     Route: 065
  7. EVISTA [Concomitant]
     Route: 065

REACTIONS (17)
  - THYROID DISORDER [None]
  - HYPERLIPIDAEMIA [None]
  - FALL [None]
  - TIBIA FRACTURE [None]
  - BREAST TENDERNESS [None]
  - FEMUR FRACTURE [None]
  - JOINT DISLOCATION [None]
  - ANKLE FRACTURE [None]
  - HYPERCALCAEMIA [None]
  - FRACTURE DELAYED UNION [None]
  - HIATUS HERNIA [None]
  - OSTEOARTHRITIS [None]
  - HAEMORRHAGIC ANAEMIA [None]
  - VITAMIN D DEFICIENCY [None]
  - OEDEMA PERIPHERAL [None]
  - EROSIVE OESOPHAGITIS [None]
  - URINARY INCONTINENCE [None]
